FAERS Safety Report 9883329 (Version 3)
Quarter: 2014Q2

REPORT INFORMATION
  Report Type: Spontaneous
  Country: TR (occurrence: TR)
  Receive Date: 20140210
  Receipt Date: 20140528
  Transmission Date: 20141212
  Serious: Yes (Other)
  Sender: FDA-Public Use
  Company Number: TR-AMGEN-TURSP2014000838

PATIENT
  Age: 36 Year
  Sex: Female
  Weight: 93 kg

DRUGS (2)
  1. ENBREL [Suspect]
     Indication: ANKYLOSING SPONDYLITIS
     Dosage: 50 MG, EVERY 15 DAYS
     Route: 058
     Dates: start: 20130715
  2. ENBREL [Suspect]
     Dosage: 50 MG, QWK
     Route: 058

REACTIONS (17)
  - Tremor [Recovered/Resolved]
  - Groin pain [Recovered/Resolved]
  - Gait disturbance [Recovered/Resolved]
  - Somnolence [Recovered/Resolved]
  - Renal disorder [Unknown]
  - Burning sensation [Not Recovered/Not Resolved]
  - Ear infection [Recovered/Resolved]
  - Kidney infection [Unknown]
  - Injection site bruising [Not Recovered/Not Resolved]
  - Injection site erythema [Not Recovered/Not Resolved]
  - Injection site swelling [Not Recovered/Not Resolved]
  - Injection site pain [Not Recovered/Not Resolved]
  - Abdominal pain [Not Recovered/Not Resolved]
  - Pain in extremity [Not Recovered/Not Resolved]
  - Groin pain [Not Recovered/Not Resolved]
  - Back pain [Not Recovered/Not Resolved]
  - Urinary tract infection [Not Recovered/Not Resolved]
